FAERS Safety Report 5151909-5 (Version None)
Quarter: 2006Q4

REPORT INFORMATION
  Report Type: 
  Country: None (occurrence: None)
  Receive Date: 20061107
  Receipt Date: 20061023
  Transmission Date: 20070319
  Serious: Yes (Hospitalization)
  Sender: FDA-Public Use
  Company Number: 200610329BBE

PATIENT
  Sex: 0

DRUGS (1)
  1. INTRAVENOUS IMMUNOGLOBULIN (MANUFACTURER UNKNOWN) [Suspect]
     Indication: MILLER FISHER SYNDROME

REACTIONS (3)
  - BLOOD VISCOSITY INCREASED [None]
  - CEREBRAL INFARCTION [None]
  - REVERSIBLE POSTERIOR LEUKOENCEPHALOPATHY SYNDROME [None]
